FAERS Safety Report 25792947 (Version 1)
Quarter: 2025Q3

REPORT INFORMATION
  Report Type: Spontaneous
  Country: EU (occurrence: EU)
  Receive Date: 20250911
  Receipt Date: 20250911
  Transmission Date: 20251021
  Serious: Yes (Hospitalization)
  Sender: TEVA
  Company Number: None

PATIENT
  Age: 46 Year
  Sex: Female
  Weight: 77 kg

DRUGS (1)
  1. EPIRUBICIN [Suspect]
     Active Substance: EPIRUBICIN
     Indication: Breast cancer
     Route: 042
     Dates: start: 20250710, end: 20250710

REACTIONS (6)
  - Administration site extravasation [Recovering/Resolving]
  - Pain in extremity [Recovering/Resolving]
  - Infusion site thrombosis [Recovering/Resolving]
  - Peripheral swelling [Recovering/Resolving]
  - Infusion site vesicles [Recovering/Resolving]
  - Infusion site erythema [Recovering/Resolving]

NARRATIVE: CASE EVENT DATE: 20250710
